FAERS Safety Report 17284237 (Version 1)
Quarter: 2020Q1

REPORT INFORMATION
  Report Type: Spontaneous
  Country: US (occurrence: US)
  Receive Date: 20200117
  Receipt Date: 20200117
  Transmission Date: 20200409
  Serious: Yes (Other)
  Sender: FDA-Public Use
  Company Number: US-VALIDUS PHARMACEUTICALS LLC-US-2020VAL000034

PATIENT

DRUGS (3)
  1. REMODULIN [Suspect]
     Active Substance: TREPROSTINIL
     Indication: PULMONARY ARTERIAL HYPERTENSION
     Dosage: 0.012 ?G/KG, CONTINUOUS
     Route: 041
     Dates: start: 20190219
  2. BUMEX [Suspect]
     Active Substance: BUMETANIDE
     Indication: PRODUCT USED FOR UNKNOWN INDICATION
     Dosage: UNK
     Route: 065
  3. BUMEX [Suspect]
     Active Substance: BUMETANIDE
     Dosage: 2 MG, QD
     Route: 065

REACTIONS (4)
  - Swelling [Unknown]
  - Abdominal distension [Unknown]
  - Ascites [Unknown]
  - Weight decreased [Unknown]

NARRATIVE: CASE EVENT DATE: 20191227
